FAERS Safety Report 18027352 (Version 1)
Quarter: 2020Q3

REPORT INFORMATION
  Report Type: Spontaneous
  Country: US (occurrence: US)
  Receive Date: 20200715
  Receipt Date: 20200715
  Transmission Date: 20201103
  Serious: Yes (Other)
  Sender: FDA-Public Use
  Company Number: US-BRISTOL-MYERS SQUIBB COMPANY-BMS-2020-054567

PATIENT
  Sex: Female

DRUGS (1)
  1. ELIQUIS [Suspect]
     Active Substance: APIXABAN
     Indication: CEREBROVASCULAR ACCIDENT PROPHYLAXIS
     Dosage: 5 MILLIGRAM, BID
     Route: 048

REACTIONS (7)
  - Vaginal disorder [Unknown]
  - Bladder disorder [Unknown]
  - Anorectal disorder [Unknown]
  - Metabolic disorder [Unknown]
  - Clostridium difficile infection [Unknown]
  - Cystitis [Unknown]
  - Prolapse [Unknown]
